FAERS Safety Report 5956031-3 (Version None)
Quarter: 2008Q4

REPORT INFORMATION
  Report Type: 
  Country: None (occurrence: None)
  Receive Date: 20081112
  Receipt Date: 20081027
  Transmission Date: 20090506
  Serious: Yes (Hospitalization)
  Sender: FDA-Public Use
  Company Number: DSA_32630_2008

PATIENT
  Age: 85 Year
  Sex: Male

DRUGS (9)
  1. DILTIAZEM [Suspect]
     Indication: MYOCARDIAL ISCHAEMIA
     Dosage: (240 MG ORAL)
     Route: 048
     Dates: end: 20060712
  2. PLAVIX [Suspect]
     Indication: MYOCARDIAL ISCHAEMIA
     Dosage: 75 MG QD ORAL
     Route: 048
     Dates: end: 20060709
  3. FUROSEMIDE [Suspect]
     Indication: DRUG USE FOR UNKNOWN INDICATION
     Dosage: (40 MG)
     Dates: end: 20060717
  4. IRBESARTAN [Suspect]
     Indication: DRUG USE FOR UNKNOWN INDICATION
     Dosage: (75 MG ORAL)
     Route: 048
     Dates: end: 20060709
  5. ESOMEPRAZOLE MAGNESIUM [Suspect]
     Indication: OESOPHAGEAL DISORDER
     Dosage: (20 MG ORAL)
     Route: 048
     Dates: end: 20060709
  6. PERHEXILINE MALEATE [Concomitant]
  7. SIMVASTATIN [Concomitant]
  8. NITROGLYCERIN [Concomitant]
  9. ALLOPURINOL [Concomitant]

REACTIONS (5)
  - DIALYSIS [None]
  - HAEMATURIA [None]
  - PYREXIA [None]
  - RENAL FAILURE ACUTE [None]
  - THROMBOTIC THROMBOCYTOPENIC PURPURA [None]
